FAERS Safety Report 9664387 (Version 1)
Quarter: 2013Q4

REPORT INFORMATION
  Report Type: Spontaneous
  Country: US (occurrence: None)
  Receive Date: 20131030
  Receipt Date: 20131030
  Transmission Date: 20140711
  Serious: Yes (Other)
  Sender: FDA-Public Use
  Company Number: None

PATIENT
  Age: 12 Year
  Sex: Male
  Weight: 59.5 kg

DRUGS (1)
  1. KAPVAY [Suspect]
     Indication: ATTENTION DEFICIT/HYPERACTIVITY DISORDER
     Dosage: 1 TABLET  AM
     Route: 048
     Dates: start: 20121221, end: 20131015

REACTIONS (3)
  - Memory impairment [None]
  - Cognitive disorder [None]
  - Educational problem [None]
